FAERS Safety Report 7830955-4 (Version None)
Quarter: 2011Q4

REPORT INFORMATION
  Report Type: 
  Country: None (occurrence: None)
  Receive Date: 20111021
  Receipt Date: 20111017
  Transmission Date: 20120403
  Serious: No
  Sender: FDA-Public Use
  Company Number: US-PFIZER INC-2011209663

PATIENT
  Sex: Female

DRUGS (2)
  1. SERTRALINE HYDROCHLORIDE [Suspect]
     Indication: MENOPAUSE
  2. SERTRALINE HYDROCHLORIDE [Suspect]
     Indication: HOT FLUSH
     Dosage: 5 MG, UNK

REACTIONS (2)
  - HOT FLUSH [None]
  - MENOPAUSE [None]
